FAERS Safety Report 7963232-1 (Version None)
Quarter: 2011Q4

REPORT INFORMATION
  Report Type: 
  Country: None (occurrence: None)
  Receive Date: 20111208
  Receipt Date: 20111202
  Transmission Date: 20120403
  Serious: No
  Sender: FDA-Public Use
  Company Number: US-BIOGENIDEC-2011BI045768

PATIENT
  Sex: Female

DRUGS (2)
  1. AVONEX [Suspect]
     Indication: MULTIPLE SCLEROSIS
     Route: 030
     Dates: start: 20110715
  2. ACETAMINOPHEN [Concomitant]
     Indication: PREMEDICATION

REACTIONS (3)
  - COUGH [None]
  - PRODUCTIVE COUGH [None]
  - CHEST PAIN [None]
